FAERS Safety Report 8177946-4 (Version None)
Quarter: 2012Q1

REPORT INFORMATION
  Report Type: 
  Country: None (occurrence: None)
  Receive Date: 20120126
  Receipt Date: 20111207
  Transmission Date: 20120608
  Serious: No
  Sender: FDA-Public Use
  Company Number: PHEH2011US011407

PATIENT
  Age: 68 Year
  Sex: Female
  Weight: 66.2 kg

DRUGS (5)
  1. AFINITOR [Suspect]
     Dosage: ONE 10MG TABLET EVERY DAY, ORAL
     Route: 048
  2. DIOVAN [Concomitant]
  3. WELCHOL PAK (COLESEVELAM HYDROCHLORIDE) [Concomitant]
  4. CYMBALTA [Concomitant]
  5. GLIMEPIRIDE [Concomitant]

REACTIONS (3)
  - DYSPNOEA [None]
  - DIZZINESS [None]
  - CHEST DISCOMFORT [None]
